FAERS Safety Report 4837967-3 (Version None)
Quarter: 2005Q4

REPORT INFORMATION
  Report Type: 
  Country: None (occurrence: None)
  Receive Date: 20051128
  Receipt Date: 20051117
  Transmission Date: 20060501
  Serious: Yes (Death)
  Sender: FDA-Public Use
  Company Number: CA-ROCHE-425459

PATIENT
  Age: 70 Year
  Sex: Male

DRUGS (21)
  1. CLONAZEPAM [Suspect]
     Indication: DRUG USE FOR UNKNOWN INDICATION
     Route: 065
  2. FLURAZEPAM HCL [Suspect]
     Indication: DRUG USE FOR UNKNOWN INDICATION
     Route: 048
  3. FLUVOXAMINE MALEATE [Suspect]
     Indication: DRUG USE FOR UNKNOWN INDICATION
     Route: 065
  4. CODEINE [Suspect]
     Indication: DRUG USE FOR UNKNOWN INDICATION
     Route: 065
  5. DILAUDID [Suspect]
     Indication: DRUG USE FOR UNKNOWN INDICATION
     Route: 065
  6. DURAGESIC-100 [Suspect]
     Indication: DRUG USE FOR UNKNOWN INDICATION
     Route: 065
  7. CORDARONE [Concomitant]
  8. SYNTHROID [Concomitant]
  9. LOSEC [Concomitant]
  10. NITRO-DUR [Concomitant]
  11. COLACE [Concomitant]
  12. MOTILIUM [Concomitant]
  13. LIPITOR [Concomitant]
  14. SENOKOT [Concomitant]
  15. APO-CAL [Concomitant]
  16. VIOXX [Concomitant]
  17. ACETAMINOPHEN [Concomitant]
  18. ACETAMINOPHEN W/ CODEINE [Concomitant]
  19. ASPIRIN [Concomitant]
  20. OXAZEPAM [Concomitant]
  21. GRAVOL TAB [Concomitant]

REACTIONS (7)
  - CONFUSIONAL STATE [None]
  - DISORIENTATION [None]
  - ECCHYMOSIS [None]
  - FATIGUE [None]
  - PATHOLOGICAL FRACTURE [None]
  - RESPIRATORY FAILURE [None]
  - RIB FRACTURE [None]
